FAERS Safety Report 10476459 (Version 2)
Quarter: 2014Q4

REPORT INFORMATION
  Report Type: Spontaneous
  Country: US (occurrence: US)
  Receive Date: 20140925
  Receipt Date: 20141030
  Transmission Date: 20150528
  Serious: Yes (Hospitalization, Other)
  Sender: FDA-Public Use
  Company Number: US-GLAXOSMITHKLINE-A1090883A

PATIENT
  Age: 83 Year
  Sex: Female

DRUGS (4)
  1. DECONGESTANT [Concomitant]
     Active Substance: UNSPECIFIED INGREDIENT
  2. ADVAIR HFA [Suspect]
     Active Substance: FLUTICASONE PROPIONATE\SALMETEROL XINAFOATE
     Indication: LUNG DISORDER
     Dosage: 1 PUFF(S), BID
     Route: 055
  3. NASAL SPRAY [Concomitant]
     Active Substance: UNSPECIFIED INGREDIENT
  4. METOPROLOL [Concomitant]
     Active Substance: METOPROLOL

REACTIONS (6)
  - Cardiac disorder [Unknown]
  - Condition aggravated [Unknown]
  - Cardiac pacemaker insertion [Unknown]
  - Pneumonia [Unknown]
  - Lung disorder [Unknown]
  - Weight decreased [Unknown]

NARRATIVE: CASE EVENT DATE: 201205
